FAERS Safety Report 6032369-9 (Version None)
Quarter: 2008Q4

REPORT INFORMATION
  Report Type: 
  Country: None (occurrence: None)
  Receive Date: 20081224
  Receipt Date: 20080912
  Transmission Date: 20090506
  Serious: No
  Sender: FDA-Public Use
  Company Number: 2008PV036694

PATIENT
  Age: 67 Year
  Sex: Female

DRUGS (4)
  1. SYMLIN [Suspect]
     Indication: TYPE 2 DIABETES MELLITUS
     Dosage: SC
     Route: 058
  2. SYMLIN [Suspect]
     Indication: TYPE 2 DIABETES MELLITUS
     Dosage: 120 MCG; TID;SC
     Route: 058
     Dates: end: 20080101
  3. LANTUS [Concomitant]
  4. METFORMIN [Concomitant]

REACTIONS (3)
  - DRUG PRESCRIBING ERROR [None]
  - INTERCEPTED DRUG DISPENSING ERROR [None]
  - OSTEOARTHRITIS [None]
